FAERS Safety Report 7202736-6 (Version None)
Quarter: 2010Q4

REPORT INFORMATION
  Report Type: 
  Country: None (occurrence: None)
  Receive Date: 20101229
  Receipt Date: 20101221
  Transmission Date: 20110411
  Serious: Yes (Other)
  Sender: FDA-Public Use
  Company Number: BR-PFIZER INC-2010176456

PATIENT
  Age: 39 Year
  Sex: Male
  Weight: 120 kg

DRUGS (1)
  1. ADVIL EXTRA ALIVIO [Suspect]
     Indication: PAIN IN EXTREMITY
     Dosage: 1 CAPSULE, UNSPECIFIED FRQUENCY
     Route: 048
     Dates: start: 20101220

REACTIONS (7)
  - CHEST PAIN [None]
  - ERYTHEMA [None]
  - FATIGUE [None]
  - HEADACHE [None]
  - PRURITUS [None]
  - SWELLING FACE [None]
  - THROAT IRRITATION [None]
